FAERS Safety Report 9271784 (Version 2)
Quarter: 2013Q3

REPORT INFORMATION
  Report Type: Spontaneous
  Country: US (occurrence: US)
  Receive Date: 20130506
  Receipt Date: 20130703
  Transmission Date: 20140515
  Serious: Yes (Other)
  Sender: FDA-Public Use
  Company Number: US-SHIRE-ALL1-2013-02838

PATIENT
  Age: 6 Year
  Sex: Male
  Weight: 22.68 kg

DRUGS (2)
  1. VYVANSE [Suspect]
     Indication: ABNORMAL BEHAVIOUR
     Dosage: UNK, 1X/DAY:QD
     Route: 048
     Dates: start: 201202, end: 2012
  2. VYVANSE [Suspect]
     Indication: PSYCHOMOTOR HYPERACTIVITY

REACTIONS (8)
  - Suicidal behaviour [Recovered/Resolved]
  - Mood altered [Recovered/Resolved]
  - Intentional self-injury [Recovered/Resolved]
  - Face injury [Recovered/Resolved]
  - Crying [Recovered/Resolved]
  - Irritability [Recovered/Resolved]
  - Decreased appetite [Recovered/Resolved]
  - Weight decreased [Recovered/Resolved]
